FAERS Safety Report 8491249-X (Version None)
Quarter: 2012Q3

REPORT INFORMATION
  Report Type: 
  Country: None (occurrence: None)
  Receive Date: 20120706
  Receipt Date: 20120702
  Transmission Date: 20120928
  Serious: Yes (Hospitalization)
  Sender: FDA-Public Use
  Company Number: PHHY2012AU047921

PATIENT
  Sex: Female

DRUGS (2)
  1. CLOZARIL [Suspect]
     Dosage: 400 MG
     Dates: start: 20060602, end: 20120605
  2. CLOZARIL [Suspect]
     Dosage: 300 MG
     Route: 048
     Dates: start: 20120702

REACTIONS (12)
  - RECTAL HAEMORRHAGE [None]
  - MALABSORPTION [None]
  - PANCYTOPENIA [None]
  - HAEMOGLOBIN DECREASED [None]
  - WHITE BLOOD CELL COUNT DECREASED [None]
  - MENTAL DISORDER [None]
  - GASTROINTESTINAL DISORDER [None]
  - LYMPHOCYTE COUNT DECREASED [None]
  - RED BLOOD CELL COUNT DECREASED [None]
  - HAEMATOCRIT DECREASED [None]
  - LYMPHOPENIA [None]
  - PLATELET COUNT DECREASED [None]
